FAERS Safety Report 8209406-6 (Version None)
Quarter: 2012Q1

REPORT INFORMATION
  Report Type: 
  Country: None (occurrence: None)
  Receive Date: 20120227
  Receipt Date: 20111222
  Transmission Date: 20120608
  Serious: No
  Sender: FDA-Public Use
  Company Number: 342062

PATIENT
  Sex: Male

DRUGS (1)
  1. VICTOZA [Suspect]
     Indication: PRODUCT USED FOR UNKNOWN INDICATION
     Dosage: 0.6 MG, QD, SUBCUTANEOUS, LOWERED DOSE, SUBCUTANEOUS
     Route: 058
     Dates: start: 20110801, end: 20111001

REACTIONS (3)
  - NERVOUSNESS [None]
  - PAIN [None]
  - NAUSEA [None]
